FAERS Safety Report 7868403-0 (Version None)
Quarter: 2011Q4

REPORT INFORMATION
  Report Type: 
  Country: None (occurrence: None)
  Receive Date: 20111028
  Receipt Date: 20110104
  Transmission Date: 20120403
  Serious: Yes (Hospitalization)
  Sender: FDA-Public Use
  Company Number: US-AMGEN-QUU440819

PATIENT
  Age: 66 Year
  Sex: Female

DRUGS (4)
  1. ENBREL [Suspect]
     Dates: start: 20010101
  2. UNSPECIFIED MEDICATION [Concomitant]
  3. CORTISONE ACETATE [Concomitant]
  4. ENBREL [Suspect]
     Indication: RHEUMATOID ARTHRITIS
     Dosage: 50 MG, QWK
     Route: 058
     Dates: start: 20010101

REACTIONS (10)
  - ALOPECIA [None]
  - MALNUTRITION [None]
  - CANDIDIASIS [None]
  - DIVERTICULITIS [None]
  - BRONCHITIS [None]
  - INJECTION SITE HAEMATOMA [None]
  - WEIGHT DECREASED [None]
  - POST PROCEDURAL DISCHARGE [None]
  - ASTHENIA [None]
  - PAIN IN EXTREMITY [None]
